FAERS Safety Report 8864211 (Version 1)
Quarter: 2012Q4

REPORT INFORMATION
  Report Type: 
  Country: US (occurrence: US)
  Receive Date: 20121024
  Receipt Date: 20121024
  Transmission Date: 20130627
  Serious: Yes (Hospitalization, Other)
  Sender: FDA-Public Use
  Company Number: US-AMGEN-USASP2011062343

PATIENT
  Age: 78 Year
  Sex: Female
  Weight: 64.4 kg

DRUGS (30)
  1. ENBREL [Suspect]
     Indication: RHEUMATOID ARTHRITIS
     Dosage: 25 mg, 2 times/wk
     Dates: start: 200812, end: 201105
  2. ALLOPURINOL [Concomitant]
     Dosage: 100 mg, UNK
  3. AMLODIPINE [Concomitant]
  4. CALCIUM [Concomitant]
  5. CARVEDILOL [Concomitant]
     Dosage: 25 mg, bid
  6. CLONIDINE [Concomitant]
     Dosage: .2 mg, UNK
  7. COREG [Concomitant]
     Dosage: 80 mg, qd
  8. CYCLOBENZAPRINE [Concomitant]
     Dosage: 10 mg, tid
  9. DIAZEPAM [Concomitant]
     Dosage: 5 mg, tid
  10. ERYTHROMYCIN [Concomitant]
  11. FOLIC ACID [Concomitant]
     Dosage: 400 mug, UNK
  12. HYDROXYCHLOROQUINE [Concomitant]
     Dosage: 200 mg, bid
  13. LEFLUNOMIDE [Concomitant]
     Dosage: 10 mg, qd
  14. LEVAQUIN [Concomitant]
  15. LEVOTHYROXINE [Concomitant]
  16. LIDODERM [Concomitant]
  17. LISINOPRIL [Concomitant]
     Dosage: 20 mg, UNK
  18. NEXIUM                             /01479302/ [Concomitant]
     Dosage: 40 mg, UNK
  19. OXYCODONE [Concomitant]
  20. PLAVIX [Concomitant]
  21. PRAVASTATIN [Concomitant]
     Dosage: 20 mg, qd
  22. PRILOSEC                           /00661201/ [Concomitant]
     Dosage: 20 mg, bid
  23. PROCHLORPERAZINE [Concomitant]
     Dosage: 10 mg, q8h
  24. QVAR [Concomitant]
  25. RUTIN                              /00055501/ [Concomitant]
  26. SINGULAIR [Concomitant]
  27. SKELAXIN                           /00611501/ [Concomitant]
  28. SUCRALFATE [Concomitant]
  29. VITAMIN B COMPLEX [Concomitant]
  30. VITAMIN C                          /00008001/ [Concomitant]

REACTIONS (4)
  - Staphylococcal infection [Recovered/Resolved]
  - Bronchiectasis [Recovered/Resolved with Sequelae]
  - Injection site pain [Recovered/Resolved]
  - Pneumonia [Recovered/Resolved with Sequelae]
